FAERS Safety Report 9133684 (Version 1)
Quarter: 2013Q1

REPORT INFORMATION
  Report Type: Not Available
  Country: US (occurrence: US)
  Receive Date: 20130302
  Receipt Date: 20130302
  Transmission Date: 20140127
  Serious: Yes (Other)
  Sender: FDA-Public Use
  Company Number: US-ENDO PHARMACEUTICALS INC.-MOBN20090002

PATIENT
  Sex: Male
  Weight: 68.1 kg

DRUGS (4)
  1. MOBAN [Suspect]
     Indication: DEPRESSION
     Route: 048
     Dates: start: 19801009, end: 19811209
  2. SINEQUAN [Suspect]
     Indication: PRODUCT USED FOR UNKNOWN INDICATION
  3. SERAX [Concomitant]
     Indication: PRODUCT USED FOR UNKNOWN INDICATION
  4. MELLARIL [Concomitant]
     Indication: PRODUCT USED FOR UNKNOWN INDICATION
     Dates: start: 19820502, end: 19950324

REACTIONS (11)
  - Convulsion [Not Recovered/Not Resolved]
  - Tardive dyskinesia [Not Recovered/Not Resolved]
  - Dyskinesia [Not Recovered/Not Resolved]
  - Insomnia [Not Recovered/Not Resolved]
  - Weight increased [Unknown]
  - Hypertension [Unknown]
  - Musculoskeletal discomfort [Unknown]
  - Restlessness [Not Recovered/Not Resolved]
  - Drug ineffective [Not Recovered/Not Resolved]
  - Akathisia [Not Recovered/Not Resolved]
  - Dystonia [Not Recovered/Not Resolved]
